FAERS Safety Report 6865818-4 (Version None)
Quarter: 2010Q3

REPORT INFORMATION
  Report Type: 
  Country: None (occurrence: None)
  Receive Date: 20100720
  Receipt Date: 20100712
  Transmission Date: 20110219
  Serious: Yes (Life-Threatening)
  Sender: FDA-Public Use
  Company Number: 2010JP004001

PATIENT
  Age: 85 Year
  Sex: Male

DRUGS (11)
  1. VESICARE [Suspect]
     Indication: HYPERTONIC BLADDER
     Dosage: SEE IMAGE
     Route: 048
     Dates: start: 20100625, end: 20100625
  2. VESICARE [Suspect]
     Indication: NOCTURIA
     Dosage: SEE IMAGE
     Route: 048
     Dates: start: 20100625, end: 20100625
  3. VESICARE [Suspect]
     Indication: HYPERTONIC BLADDER
     Dosage: SEE IMAGE
     Route: 048
     Dates: start: 20100626, end: 20100626
  4. VESICARE [Suspect]
     Indication: NOCTURIA
     Dosage: SEE IMAGE
     Route: 048
     Dates: start: 20100626, end: 20100626
  5. VESICARE [Suspect]
     Indication: HYPERTONIC BLADDER
     Dosage: SEE IMAGE
     Route: 048
     Dates: start: 20100627, end: 20100630
  6. VESICARE [Suspect]
     Indication: NOCTURIA
     Dosage: SEE IMAGE
     Route: 048
     Dates: start: 20100627, end: 20100630
  7. FLUITRAN (TRICHLORMETHIAZIDE) TABLET [Concomitant]
  8. SLOW-K [Concomitant]
  9. BAYLOTENSIN (NITRENDIPINE) [Concomitant]
  10. TAMSULOSIN HCL [Concomitant]
  11. SARPOGRELATE (SARPOGRELATE) TABLET [Concomitant]

REACTIONS (2)
  - APALLIC SYNDROME [None]
  - HYPOGLYCAEMIC COMA [None]
